FAERS Safety Report 14770416 (Version 1)
Quarter: 2018Q2

REPORT INFORMATION
  Report Type: Spontaneous
  Country: US (occurrence: US)
  Receive Date: 20180417
  Receipt Date: 20180417
  Transmission Date: 20180711
  Serious: Yes (Other)
  Sender: FDA-Public Use
  Company Number: US-ENDO PHARMACEUTICALS INC-2018-026725

PATIENT
  Age: 64 Year
  Sex: Male
  Weight: 99.77 kg

DRUGS (15)
  1. TESTOPEL [Suspect]
     Active Substance: TESTOSTERONE
     Indication: BLOOD TESTOSTERONE DECREASED
     Dosage: 750 MG, EVERY 3 MONTHS
     Route: 058
     Dates: start: 20180312
  2. BYSTOLIC [Concomitant]
     Active Substance: NEBIVOLOL HYDROCHLORIDE
     Indication: PRODUCT USED FOR UNKNOWN INDICATION
     Dosage: 10 MG, DAILY
     Route: 065
  3. GLUCOSAMINE CHONDROITIN            /01430901/ [Concomitant]
     Indication: ARTHRITIS
     Dosage: UNK UNKNOWN, UNKNOWN
     Route: 065
  4. LAMICTAL [Concomitant]
     Active Substance: LAMOTRIGINE
     Indication: DEPRESSION
     Dosage: 100 MG, BID
  5. TESTOPEL [Suspect]
     Active Substance: TESTOSTERONE
     Dosage: 750 MG, EVERY 3 MONTHS
     Route: 058
     Dates: start: 201603, end: 201711
  6. CLONIDINE HYDROCHLORIDE TABLETS 0.1 MG [Concomitant]
     Active Substance: CLONIDINE HYDROCHLORIDE
     Indication: HYPERTENSION
     Dosage: 0.2 MG, DAILY
     Route: 065
  7. VITAMIN C [Concomitant]
     Active Substance: ASCORBIC ACID
     Indication: PRODUCT USED FOR UNKNOWN INDICATION
     Dosage: 1000 MG, UNKNOWN
     Route: 065
  8. ANTIBIOTICS [Concomitant]
     Active Substance: UNSPECIFIED INGREDIENT
     Indication: PRODUCT USED FOR UNKNOWN INDICATION
     Dosage: UNK UNKNOWN, UNKNOWN
     Route: 065
  9. CHLORTHALIDONE. [Concomitant]
     Active Substance: CHLORTHALIDONE
     Indication: PRODUCT USED FOR UNKNOWN INDICATION
     Dosage: 25 MG, DAILY
     Route: 065
  10. NEXIUM [Concomitant]
     Active Substance: ESOMEPRAZOLE MAGNESIUM
     Indication: GASTROOESOPHAGEAL REFLUX DISEASE
     Dosage: 180 MG, DAILY
     Route: 065
  11. CYMBALTA [Concomitant]
     Active Substance: DULOXETINE HYDROCHLORIDE
     Indication: PAIN
     Dosage: 60 MG, DAILY
     Route: 065
  12. TESTOPEL [Suspect]
     Active Substance: TESTOSTERONE
     Dosage: 750 MG, EVERY 4 MONTHS
     Route: 058
     Dates: start: 201711, end: 20180312
  13. COENZYME Q10 [Concomitant]
     Active Substance: UBIDECARENONE
     Indication: PRODUCT USED FOR UNKNOWN INDICATION
     Dosage: UNK UNKNOWN, UNKNOWN
     Route: 065
  14. CENTRUM SILVER +50 [Concomitant]
     Indication: PRODUCT USED FOR UNKNOWN INDICATION
     Dosage: UNK UNKNOWN, UNKNOWN
     Route: 065
  15. VITAMIN D3 [Concomitant]
     Active Substance: CHOLECALCIFEROL
     Indication: PRODUCT USED FOR UNKNOWN INDICATION
     Dosage: 5000 IU, UNKNOWN
     Route: 065

REACTIONS (7)
  - Implant site pain [Not Recovered/Not Resolved]
  - Tongue oedema [Unknown]
  - Gingival swelling [Unknown]
  - Hypersensitivity [Unknown]
  - Burning mouth syndrome [Unknown]
  - Prescribed overdose [Unknown]
  - Infective glossitis [Unknown]

NARRATIVE: CASE EVENT DATE: 201603
